FAERS Safety Report 23164599 (Version 2)
Quarter: 2023Q4

REPORT INFORMATION
  Report Type: Spontaneous
  Country: BR (occurrence: BR)
  Receive Date: 20231109
  Receipt Date: 20231128
  Transmission Date: 20240110
  Serious: Yes (Hospitalization, Other)
  Sender: FDA-Public Use
  Company Number: BR-TORRENT-00006062

PATIENT
  Age: 95 Year
  Sex: Female
  Weight: 66 kg

DRUGS (3)
  1. OLMESARTAN MEDOXOMIL [Suspect]
     Active Substance: OLMESARTAN MEDOXOMIL
     Indication: Hypertension
     Dosage: 1 TABLET AFTER BREAKFAST AND 1 TABLET AT NIGHT (EVERY 12 HOURS)
     Route: 048
     Dates: start: 2021
  2. ADIPEPT [Concomitant]
     Indication: Gastrointestinal disorder prophylaxis
     Dosage: UNKNOWN
     Route: 048
     Dates: start: 2019
  3. METOPROLOL SUCCINATE [Concomitant]
     Active Substance: METOPROLOL SUCCINATE
     Indication: Heart rate
     Dosage: UNKNOWN
     Route: 048
     Dates: start: 202304

REACTIONS (11)
  - Thyroid mass [Not Recovered/Not Resolved]
  - Malaise [Not Recovered/Not Resolved]
  - Blood iron decreased [Not Recovered/Not Resolved]
  - Blood sodium decreased [Not Recovered/Not Resolved]
  - Blood potassium decreased [Not Recovered/Not Resolved]
  - Chromaturia [Unknown]
  - Syncope [Unknown]
  - Myocardial infarction [Recovered/Resolved]
  - Erythema [Unknown]
  - Joint swelling [Unknown]
  - Blood pressure decreased [Unknown]

NARRATIVE: CASE EVENT DATE: 20210101
